FAERS Safety Report 18168684 (Version 2)
Quarter: 2020Q3

REPORT INFORMATION
  Report Type: Spontaneous
  Country: US (occurrence: US)
  Receive Date: 20200819
  Receipt Date: 20200827
  Transmission Date: 20201103
  Serious: Yes (Hospitalization)
  Sender: FDA-Public Use
  Company Number: US-TEVA-2020-US-1815229

PATIENT
  Age: 13 Year
  Sex: Female

DRUGS (4)
  1. METHADONE [Interacting]
     Active Substance: METHADONE HYDROCHLORIDE
     Indication: BREAKTHROUGH PAIN
     Dosage: 15 MILLIGRAM DAILY;
     Route: 048
  2. CANNABIDIOL [Interacting]
     Active Substance: CANNABIDIOL
     Dosage: 50 MG/ML CANNABIDIOL OIL 5 ML 3 TIMES DAILY 6 TIMES DAILY
     Route: 048
  3. CANNABIDIOL [Interacting]
     Active Substance: CANNABIDIOL
     Indication: NEUROENDOCRINE CARCINOMA METASTATIC
     Dosage: 25 MG/ML CANNABIDIOL OIL 5 ML 3 TIMES DAILY
     Route: 048
  4. MORPHINE [Suspect]
     Active Substance: MORPHINE
     Indication: BREAKTHROUGH PAIN
     Dosage: EVERY 4 HOURS AS NEEDED; RECEIVED 1 TO 2 DOSES OF MORPHINE A FEW TIMES PER WEEK
     Route: 048

REACTIONS (4)
  - Drug interaction [Recovering/Resolving]
  - Intentional product misuse [Unknown]
  - Fatigue [Recovering/Resolving]
  - Somnolence [Recovering/Resolving]
